FAERS Safety Report 17681811 (Version 1)
Quarter: 2020Q2

REPORT INFORMATION
  Report Type: Spontaneous
  Country: AU (occurrence: AU)
  Receive Date: 20200417
  Receipt Date: 20200417
  Transmission Date: 20200714
  Serious: Yes (Other)
  Sender: FDA-Public Use
  Company Number: AU-BAXTER-2020BAX007772

PATIENT
  Age: 70 Year
  Sex: Female

DRUGS (8)
  1. HERCEPTIN [Suspect]
     Active Substance: TRASTUZUMAB
     Dosage: INFUSED 53 ML AT AN RATE OF 200 ML/HR, 45 ML LEFT OUT OF 289 ML
     Route: 042
     Dates: start: 20200406, end: 20200406
  2. PERJETA [Suspect]
     Active Substance: PERTUZUMAB
     Indication: PRODUCT USED FOR UNKNOWN INDICATION
     Route: 065
     Dates: start: 20200406
  3. STERILE WATER [Suspect]
     Active Substance: WATER
     Dosage: INFUSED 53 ML AT AN RATE OF 200 ML/HR, 45 ML LEFT OUT OF 289 ML
     Route: 042
     Dates: start: 20200406, end: 20200406
  4. BAXTER 0.9% SODIUM CHLORIDE 450MG_50ML INJECTION BP BAG AHB1306_AHB136 [Suspect]
     Active Substance: SODIUM CHLORIDE
     Dosage: INFUSED 53 ML AT AN RATE OF 200 ML/HR, 45 ML LEFT OUT OF 289 ML
     Route: 042
     Dates: start: 20200406, end: 20200406
  5. BAXTER 0.9% SODIUM CHLORIDE 450MG_50ML INJECTION BP BAG AHB1306_AHB136 [Suspect]
     Active Substance: SODIUM CHLORIDE
     Indication: MEDICATION DILUTION
     Dosage: INFUSED 191 ML FOR 1 HOUR (1.5 HOUR RATE 200 ML/HR) FOR LOADING DOSE (OF 289 ML)
     Route: 042
     Dates: start: 20200406, end: 20200406
  6. HYDROCORTISONE. [Suspect]
     Active Substance: HYDROCORTISONE
     Indication: CHILLS
     Route: 042
     Dates: start: 20200406
  7. STERILE WATER [Suspect]
     Active Substance: WATER
     Indication: MEDICATION DILUTION
     Dosage: INFUSED 191 ML FOR 1 HOUR (1.5 HOUR RATE 200 ML/HR) FOR LOADING DOSE (OF 289 ML)
     Route: 042
     Dates: start: 20200406, end: 20200406
  8. HERCEPTIN [Suspect]
     Active Substance: TRASTUZUMAB
     Indication: NEOADJUVANT THERAPY
     Dosage: INFUSED 191 ML FOR 1 HOUR (1.5 HOUR RATE 200 ML/HR) FOR LOADING DOSE (520 MG DILUTED IN 289 ML)
     Route: 042
     Dates: start: 20200406, end: 20200406

REACTIONS (2)
  - Pyrexia [Recovered/Resolved]
  - Chills [Recovered/Resolved]

NARRATIVE: CASE EVENT DATE: 20200406
